FAERS Safety Report 5588929-2 (Version None)
Quarter: 2008Q1

REPORT INFORMATION
  Report Type: 
  Country: None (occurrence: None)
  Receive Date: 20080111
  Receipt Date: 20071218
  Transmission Date: 20080703
  Serious: Yes (Other)
  Sender: FDA-Public Use
  Company Number: FI-GENENTECH-252027

PATIENT
  Age: 59 Year
  Sex: Female

DRUGS (5)
  1. MABTHERA [Suspect]
     Indication: RHEUMATOID ARTHRITIS
     Dosage: 1000 MG, UNK
     Route: 042
     Dates: start: 20070615
  2. CALCIUM SUPPLEMENT [Concomitant]
     Indication: DRUG USE FOR UNKNOWN INDICATION
  3. CONCOMITANT UNSPECIFIED DRUG [Concomitant]
     Indication: DRUG USE FOR UNKNOWN INDICATION
  4. CONCOMITANT UNSPECIFIED DRUG [Concomitant]
  5. VITAMIN D [Concomitant]
     Indication: DRUG USE FOR UNKNOWN INDICATION

REACTIONS (5)
  - AMYLOIDOSIS [None]
  - NEPHROTIC SYNDROME [None]
  - PROTEINURIA [None]
  - RENAL FAILURE [None]
  - RENAL FAILURE CHRONIC [None]
